FAERS Safety Report 20015846 (Version 1)
Quarter: 2021Q4

REPORT INFORMATION
  Report Type: Spontaneous
  Country: US (occurrence: None)
  Receive Date: 20211101
  Receipt Date: 20211101
  Transmission Date: 20220303
  Serious: No
  Sender: FDA-Public Use
  Company Number: None

PATIENT
  Age: 60 Year
  Sex: Female

DRUGS (1)
  1. HUMIRA [Suspect]
     Active Substance: ADALIMUMAB
     Dosage: OTHER FREQUENCY : OTHER;?
     Route: 058
     Dates: start: 20211016, end: 202110

REACTIONS (4)
  - Injection site reaction [None]
  - Skin haemorrhage [None]
  - Hypertension [None]
  - Tachycardia [None]

NARRATIVE: CASE EVENT DATE: 20211016
